FAERS Safety Report 12193890 (Version 2)
Quarter: 2016Q2

REPORT INFORMATION
  Report Type: Other
  Country: JP (occurrence: JP)
  Receive Date: 20160321
  Receipt Date: 20160404
  Transmission Date: 20160815
  Serious: Yes (Other)
  Sender: FDA-Public Use
  Company Number: JP-ACTELION-A-CH2016-132973

PATIENT
  Age: 62 Year
  Sex: Female

DRUGS (2)
  1. TRACLEER [Suspect]
     Active Substance: BOSENTAN
     Indication: PULMONARY HYPERTENSION
     Dosage: UNK
     Route: 048
     Dates: start: 201211
  2. TADALAFIL [Concomitant]
     Active Substance: TADALAFIL
     Indication: PULMONARY ARTERIAL HYPERTENSION
     Dosage: UNK
     Dates: start: 201204

REACTIONS (6)
  - Respiratory gas exchange disorder [Unknown]
  - Interstitial lung disease [Unknown]
  - Hypoxia [Unknown]
  - Respiratory failure [Unknown]
  - Brain natriuretic peptide increased [Unknown]
  - Disease progression [Unknown]

NARRATIVE: CASE EVENT DATE: 201312
